FAERS Safety Report 8556345-7 (Version None)
Quarter: 2012Q3

REPORT INFORMATION
  Report Type: 
  Country: None (occurrence: None)
  Receive Date: 20120801
  Receipt Date: 20120725
  Transmission Date: 20120928
  Serious: Yes (Other)
  Sender: FDA-Public Use
  Company Number: JP-JNJFOC-20120714478

PATIENT
  Sex: Female

DRUGS (1)
  1. DOXORUBICIN HYDROCHLORIDE [Suspect]
     Indication: OVARIAN CANCER
     Route: 042

REACTIONS (6)
  - ADVERSE EVENT [None]
  - INFECTION [None]
  - GASTROINTESTINAL DISORDER [None]
  - NERVOUS SYSTEM DISORDER [None]
  - BONE MARROW FAILURE [None]
  - SKIN DISORDER [None]
